FAERS Safety Report 18689787 (Version 2)
Quarter: 2021Q1

REPORT INFORMATION
  Report Type: Report from Study
  Country: US (occurrence: US)
  Receive Date: 20201231
  Receipt Date: 20210113
  Transmission Date: 20210419
  Serious: Yes (Hospitalization, Other)
  Sender: FDA-Public Use
  Company Number: US-OTSUKA-2020_029656

PATIENT
  Sex: Female

DRUGS (2)
  1. ASTX727 [Suspect]
     Active Substance: CEDAZURIDINE\DECITABINE
     Indication: MYELODYSPLASTIC SYNDROME
     Dosage: 135 MG (100 MG OF CEDAZURIDINE AND 35 MG OF DECITABINE), QD (DAYS 1?5 ON AN EMPTY STOMACH OF 28 DAY)
     Route: 048
     Dates: start: 20201029
  2. LISINOPRIL. [Concomitant]
     Active Substance: LISINOPRIL
     Indication: PRODUCT USED FOR UNKNOWN INDICATION
     Dosage: UNK
     Route: 065

REACTIONS (2)
  - Pancytopenia [Unknown]
  - Gastrointestinal haemorrhage [Unknown]
